FAERS Safety Report 16474515 (Version 1)
Quarter: 2019Q3

REPORT INFORMATION
  Report Type: Spontaneous
  Country: US (occurrence: US)
  Receive Date: 20190624
  Receipt Date: 20190624
  Transmission Date: 20191004
  Serious: Yes (Disabling, Other)
  Sender: FDA-Public Use
  Company Number: None

PATIENT
  Age: 18 Year
  Sex: Female
  Weight: 54 kg

DRUGS (4)
  1. MINOCYCLINE HCL [Suspect]
     Active Substance: MINOCYCLINE HYDROCHLORIDE
     Indication: ACNE
     Dosage: ?          QUANTITY:1 TABLET(S);?
     Route: 048
     Dates: start: 20170510, end: 20190517
  2. IBUPROFEN. [Concomitant]
     Active Substance: IBUPROFEN
  3. VELTIN [Concomitant]
     Active Substance: CLINDAMYCIN PHOSPHATE\TRETINOIN
  4. BIRTH CONTROL PILLS [Concomitant]
     Active Substance: UNSPECIFIED INGREDIENT

REACTIONS (2)
  - Lupus-like syndrome [None]
  - Arthralgia [None]

NARRATIVE: CASE EVENT DATE: 20180914
